FAERS Safety Report 14768865 (Version 1)
Quarter: 2018Q2

REPORT INFORMATION
  Report Type: Spontaneous
  Country: RU (occurrence: RU)
  Receive Date: 20180417
  Receipt Date: 20180417
  Transmission Date: 20180711
  Serious: Yes (Other)
  Sender: FDA-Public Use
  Company Number: RU-ABBVIE-18S-251-2322856-00

PATIENT
  Age: 9 Month
  Sex: Male

DRUGS (3)
  1. MYDOCALM (TOLPERISONE HYDROCHLORIDE) [Concomitant]
     Active Substance: TOLPERISONE HYDROCHLORIDE
     Indication: PRODUCT USED FOR UNKNOWN INDICATION
     Route: 065
     Dates: start: 20180221, end: 20180301
  2. DEPAKINE CHRONO [Suspect]
     Active Substance: VALPROATE SODIUM
     Indication: EPILEPSY
     Route: 048
     Dates: start: 20180221, end: 20180301
  3. PANTOGAM [Concomitant]
     Active Substance: CALCIUM HOPANTENATE
     Indication: PRODUCT USED FOR UNKNOWN INDICATION
     Route: 065
     Dates: start: 20180221, end: 20180301

REACTIONS (3)
  - Faeces discoloured [Recovered/Resolved]
  - Appetite disorder [Unknown]
  - Jaundice [Recovered/Resolved]

NARRATIVE: CASE EVENT DATE: 20180228
